FAERS Safety Report 9911139 (Version 2)
Quarter: 2014Q1

REPORT INFORMATION
  Report Type: Spontaneous
  Country: US (occurrence: US)
  Receive Date: 20140219
  Receipt Date: 20140219
  Transmission Date: 20141002
  Serious: No
  Sender: FDA-Public Use
  Company Number: US-GILEAD-2012-0050149

PATIENT
  Sex: Female

DRUGS (5)
  1. LETAIRIS [Suspect]
     Indication: PULMONARY HYPERTENSION
     Dosage: 5 MG, UNK
     Route: 048
     Dates: start: 20120110
  2. LETAIRIS [Suspect]
     Indication: HEART DISEASE CONGENITAL
     Dosage: 2.5 UNK, UNK
     Route: 048
  3. VENTAVIS [Concomitant]
  4. TYVASO [Concomitant]
  5. REVATIO [Concomitant]

REACTIONS (2)
  - Cough [Unknown]
  - Flushing [Unknown]
